FAERS Safety Report 14373376 (Version 1)
Quarter: 2018Q1

REPORT INFORMATION
  Report Type: Spontaneous
  Country: US (occurrence: AS)
  Receive Date: 20180109
  Receipt Date: 20180109
  Transmission Date: 20180509
  Serious: Yes (Other)
  Sender: FDA-Public Use
  Company Number: None

PATIENT
  Age: 67 Year
  Sex: Male

DRUGS (2)
  1. HEPARIN/SODIUM CHLORIDE [Suspect]
     Active Substance: HEPARIN SODIUM\SODIUM CHLORIDE
     Indication: ATRIAL FIBRILLATION
     Route: 042
     Dates: start: 20170830, end: 20170901
  2. ASPIRIN. [Suspect]
     Active Substance: ASPIRIN
     Route: 048

REACTIONS (6)
  - Occult blood positive [None]
  - Gastric haemorrhage [None]
  - Gastrointestinal haemorrhage [None]
  - Faeces discoloured [None]
  - Gastrointestinal arteriovenous malformation [None]
  - Therapy change [None]

NARRATIVE: CASE EVENT DATE: 20170908
